FAERS Safety Report 22650479 (Version 1)
Quarter: 2023Q2

REPORT INFORMATION
  Report Type: Spontaneous
  Country: US (occurrence: None)
  Receive Date: 20230627
  Receipt Date: 20230627
  Transmission Date: 20230721
  Serious: Yes (Other)
  Sender: FDA-Public Use
  Company Number: None

PATIENT
  Age: 23 Year
  Sex: Female

DRUGS (2)
  1. MIFEPRISTONE [Suspect]
     Active Substance: MIFEPRISTONE
     Indication: Abortion induced
     Route: 048
     Dates: start: 20230609, end: 20230611
  2. MISOPROSTOL [Suspect]
     Active Substance: MISOPROSTOL

REACTIONS (5)
  - Muscle spasms [None]
  - Vaginal haemorrhage [None]
  - Vaginal haemorrhage [None]
  - Abdominal pain [None]
  - Abortion induced incomplete [None]

NARRATIVE: CASE EVENT DATE: 20230624
